FAERS Safety Report 4610736-5 (Version None)
Quarter: 2005Q1

REPORT INFORMATION
  Report Type: 
  Country: None (occurrence: None)
  Receive Date: 20050222
  Receipt Date: 20040621
  Transmission Date: 20050727
  Serious: Yes (Hospitalization, Other)
  Sender: FDA-Public Use
  Company Number: WAES 0406USA02007

PATIENT
  Age: 54 Year
  Sex: Male

DRUGS (2)
  1. PROPECIA [Suspect]
     Indication: ALOPECIA
     Dosage: 1 MG/DAILY/PO
     Route: 048
     Dates: start: 19990101, end: 20040520
  2. DOXYCYCLINE [Concomitant]

REACTIONS (5)
  - GYNAECOMASTIA [None]
  - MUSCLE SPASMS [None]
  - TESTICULAR ATROPHY [None]
  - TESTICULAR PAIN [None]
  - TESTICULAR RETRACTION [None]
